FAERS Safety Report 9224174 (Version 1)
Quarter: 2013Q1

REPORT INFORMATION
  Report Type: Spontaneous
  Country: US (occurrence: None)
  Receive Date: 20120914
  Receipt Date: 20120914
  Transmission Date: 20140127
  Serious: Yes (Other)
  Sender: FDA-Public Use
  Company Number: JPI-P-019634

PATIENT
  Age: 20 Year
  Sex: Female

DRUGS (1)
  1. XYREM [Suspect]
     Indication: CATAPLEXY
     Route: 048
     Dates: start: 20120130, end: 20120130

REACTIONS (9)
  - Respiratory depression [None]
  - Dyspnoea [None]
  - Apnoea [None]
  - Respiratory rate decreased [None]
  - Hypopnoea [None]
  - Hypokinesia [None]
  - Vomiting [None]
  - Somnolence [None]
  - Asthenia [None]
